FAERS Safety Report 26011975 (Version 1)
Quarter: 2025Q4

REPORT INFORMATION
  Report Type: Spontaneous
  Country: US (occurrence: None)
  Receive Date: 20251107
  Receipt Date: 20251107
  Transmission Date: 20260117
  Serious: Yes (Hospitalization)
  Sender: FDA-CTU
  Company Number: None

PATIENT
  Age: 20 Year
  Sex: Male

DRUGS (9)
  1. PULMOZYME [Suspect]
     Active Substance: DORNASE ALFA
     Indication: Infective pulmonary exacerbation of cystic fibrosis
     Dosage: FREQUENCY : TWICE A DAY;?
     Route: 055
     Dates: start: 20200529
  2. ALTERA [Concomitant]
  3. ARIKAYCE SUS [Concomitant]
  4. CAYSTON [Concomitant]
     Active Substance: AZTREONAM
  5. PARI ALTERA NEBULIZER HAN [Concomitant]
  6. PULMOZYME SOL 1 MG/ML [Concomitant]
  7. RIFAMPIN CAP150MG [Concomitant]
  8. TOBRAMYCIN [Concomitant]
     Active Substance: TOBRAMYCIN
  9. TOBRAMYCIN NEB 300/5ML [Concomitant]

REACTIONS (5)
  - Cystic fibrosis [None]
  - Condition aggravated [None]
  - Sleep disorder [None]
  - Loss of personal independence in daily activities [None]
  - Therapy interrupted [None]

NARRATIVE: CASE EVENT DATE: 20251001
